FAERS Safety Report 8781145 (Version 1)
Quarter: 2012Q4

REPORT INFORMATION
  Report Type: 
  Country: CL (occurrence: CL)
  Receive Date: 20120913
  Receipt Date: 20120913
  Transmission Date: 20130627
  Serious: Yes (Other)
  Sender: FDA-Public Use
  Company Number: CL-009507513-1209CHL003197

PATIENT

DRUGS (1)
  1. NUVARING [Suspect]
     Indication: CONTRACEPTION
     Dosage: delivers 0.120mg/0.015mg, qd
     Route: 067

REACTIONS (1)
  - Systemic lupus erythematosus [Not Recovered/Not Resolved]
